FAERS Safety Report 4555882-X (Version None)
Quarter: 2005Q1

REPORT INFORMATION
  Report Type: 
  Country: None (occurrence: None)
  Receive Date: 20050119
  Receipt Date: 20041227
  Transmission Date: 20050727
  Serious: Yes (Life-Threatening)
  Sender: FDA-Public Use
  Company Number: JP-ROCHE-390769

PATIENT
  Age: 45 Year
  Sex: Male

DRUGS (9)
  1. TAMIFLU [Suspect]
     Route: 048
     Dates: start: 20041215, end: 20041217
  2. BANAN [Concomitant]
     Route: 048
     Dates: start: 20041214
  3. CEFAMEZIN [Concomitant]
     Route: 041
     Dates: start: 20041214
  4. ZITHROMAX [Concomitant]
     Route: 048
     Dates: start: 20041217
  5. PENTCILLIN [Concomitant]
     Route: 041
     Dates: start: 20041217
  6. ANTIBIOTICS UNSPECIFIED [Concomitant]
  7. ANTIPYRETIC AGENTS NOS [Concomitant]
  8. ANALGESICS NOS [Concomitant]
  9. ANTI-INFLAMMATORY MEDICATIONS NOS [Concomitant]

REACTIONS (6)
  - ARTHRALGIA [None]
  - ASPARTATE AMINOTRANSFERASE INCREASED [None]
  - ILEUS [None]
  - LARGE INTESTINAL ULCER [None]
  - PERITONITIS [None]
  - RASH [None]
